FAERS Safety Report 13059152 (Version 2)
Quarter: 2017Q1

REPORT INFORMATION
  Report Type: Spontaneous
  Country: US (occurrence: US)
  Receive Date: 20161223
  Receipt Date: 20170114
  Transmission Date: 20170428
  Serious: Yes (Other)
  Sender: FDA-Public Use
  Company Number: US-009507513-1612USA011420

PATIENT

DRUGS (1)
  1. KEYTRUDA [Suspect]
     Active Substance: PEMBROLIZUMAB
     Indication: HODGKIN^S DISEASE
     Dosage: 2 MG/KG, Q3W

REACTIONS (5)
  - Acute myeloid leukaemia [Unknown]
  - Thrombocytopenia [Unknown]
  - Infusion site reaction [Unknown]
  - Myelodysplastic syndrome [Unknown]
  - Hypothyroidism [Unknown]
